FAERS Safety Report 16346164 (Version 1)
Quarter: 2019Q2

REPORT INFORMATION
  Report Type: Spontaneous
  Country: US (occurrence: US)
  Receive Date: 20190523
  Receipt Date: 20190523
  Transmission Date: 20190711
  Serious: Yes (Hospitalization)
  Sender: FDA-Public Use
  Company Number: US-GLAXOSMITHKLINE-US2019090294

PATIENT
  Sex: Female

DRUGS (2)
  1. BREO ELLIPTA [Suspect]
     Active Substance: FLUTICASONE FUROATE\VILANTEROL TRIFENATATE
     Indication: PRODUCT USED FOR UNKNOWN INDICATION
     Dosage: 100/25 MCG, 1 PUFF(S), BID
  2. BREO ELLIPTA [Suspect]
     Active Substance: FLUTICASONE FUROATE\VILANTEROL TRIFENATATE
     Dosage: 200/50 MCG, UNK
     Route: 055
     Dates: start: 201904

REACTIONS (4)
  - Intercepted product prescribing error [Unknown]
  - Fungal infection [Unknown]
  - Ill-defined disorder [Unknown]
  - Chronic obstructive pulmonary disease [Unknown]
